FAERS Safety Report 8072198-8 (Version None)
Quarter: 2012Q1

REPORT INFORMATION
  Report Type: 
  Country: None (occurrence: None)
  Receive Date: 20120126
  Receipt Date: 20120117
  Transmission Date: 20120608
  Serious: Yes (Other)
  Sender: FDA-Public Use
  Company Number: US-BAYER-2011-009717

PATIENT
  Age: 29 Year
  Sex: Female
  Weight: 126.98 kg

DRUGS (4)
  1. YAZ [Suspect]
     Indication: CONTRACEPTION
     Dosage: UNK
     Dates: start: 20080424, end: 20090507
  2. SEASONALE [Concomitant]
  3. AZITHROMYCIN [Concomitant]
     Dosage: 250 MG, UNK
     Route: 048
     Dates: start: 20081204
  4. PHENTERMINE [Concomitant]
     Indication: WEIGHT DECREASED
     Dosage: UNK
     Route: 048
     Dates: start: 20080110, end: 20090701

REACTIONS (8)
  - CHOLECYSTITIS CHRONIC [None]
  - EMOTIONAL DISTRESS [None]
  - ABDOMINAL PAIN [None]
  - DYSPEPSIA [None]
  - GALLBLADDER DISORDER [None]
  - FEAR [None]
  - ANXIETY [None]
  - PAIN [None]
